FAERS Safety Report 9459572 (Version 1)
Quarter: 2013Q3

REPORT INFORMATION
  Report Type: Spontaneous
  Country: US (occurrence: US)
  Receive Date: 20130815
  Receipt Date: 20130815
  Transmission Date: 20140515
  Serious: No
  Sender: FDA-Public Use
  Company Number: US-PFIZER INC-2013235881

PATIENT
  Age: 63 Year
  Sex: Female
  Weight: 44 kg

DRUGS (11)
  1. PRISTIQ [Suspect]
     Indication: DEPRESSION
     Dosage: 50 MG, 1X/DAY
     Route: 048
     Dates: start: 201308
  2. PANTOPRAZOLE [Concomitant]
     Dosage: UNK
  3. GAS-X [Concomitant]
     Dosage: UNK
  4. HYDROCHLOROTHIAZIDE [Concomitant]
     Dosage: UNK
  5. VITAMIN D3 [Concomitant]
     Indication: VITAMIN D DECREASED
     Dosage: 2000 IU, UNK
  6. CENTRUM SILVER [Concomitant]
     Dosage: UNK, 1X/DAY
  7. CITRACAL [Concomitant]
     Dosage: UNK, 2X/DAY
  8. ASPIRIN [Concomitant]
     Dosage: 81 MG, 1X/DAY
  9. GABAPENTIN [Concomitant]
     Dosage: UNK
  10. GILENYA [Concomitant]
     Dosage: UNK
  11. QUETIAPINE [Concomitant]
     Dosage: UNK

REACTIONS (2)
  - Nausea [Unknown]
  - Dizziness [Unknown]
